FAERS Safety Report 8460188-2 (Version None)
Quarter: 2012Q2

REPORT INFORMATION
  Report Type: 
  Country: None (occurrence: None)
  Receive Date: 20120622
  Receipt Date: 20120614
  Transmission Date: 20120825
  Serious: Yes (Hospitalization)
  Sender: FDA-Public Use
  Company Number: CH-ABBOTT-12P-151-0928291-00

PATIENT
  Age: 27 Year
  Sex: Female
  Weight: 67 kg

DRUGS (11)
  1. PREDNISONE TAB [Suspect]
     Route: 048
     Dates: start: 20120306, end: 20120412
  2. PREDNISONE TAB [Suspect]
     Route: 048
     Dates: start: 20120420, end: 20120426
  3. HUMIRA [Suspect]
     Route: 058
  4. HUMIRA [Suspect]
     Route: 058
  5. PREDNISONE TAB [Suspect]
     Indication: CROHN'S DISEASE
     Route: 048
     Dates: start: 20120315, end: 20120321
  6. PREDNISONE TAB [Suspect]
     Route: 048
     Dates: start: 20120322, end: 20120328
  7. PREDNISONE TAB [Suspect]
     Route: 048
     Dates: start: 20120329, end: 20120405
  8. PREDNISONE TAB [Suspect]
     Route: 048
     Dates: start: 20120413, end: 20120419
  9. HUMIRA [Suspect]
     Indication: CROHN'S DISEASE
     Route: 058
     Dates: start: 20120315, end: 20120315
  10. SOLEVITA FORTE [Concomitant]
     Indication: NERVOUSNESS
     Dates: start: 20111101
  11. BELARA [Concomitant]
     Indication: CONTRACEPTION
     Route: 048
     Dates: start: 20120322

REACTIONS (1)
  - PYREXIA [None]
